FAERS Safety Report 10930821 (Version 1)
Quarter: 2015Q1

REPORT INFORMATION
  Report Type: Spontaneous
  Country: US (occurrence: US)
  Receive Date: 20150319
  Receipt Date: 20150319
  Transmission Date: 20150721
  Serious: No
  Sender: FDA-Public Use
  Company Number: US-BAUSCH-BL-2014-005549

PATIENT
  Age: 53 Year
  Sex: Female

DRUGS (4)
  1. RETIN-A [Suspect]
     Active Substance: TRETINOIN
     Indication: CHLOASMA
     Dosage: APPLIED TO FACE ONCE AT BEDTIME EVERY 2-3 NIGHTS
     Route: 061
     Dates: start: 2014
  2. RETIN-A [Suspect]
     Active Substance: TRETINOIN
     Indication: SOLAR LENTIGO
  3. HYDROQUINONE. [Concomitant]
     Active Substance: HYDROQUINONE
     Indication: PRODUCT USED FOR UNKNOWN INDICATION
  4. SUNSCREEN [Concomitant]
     Active Substance: HOMOSALATE\OCTINOXATE\OCTISALATE\OXYBENZONE\TITANIUM DIOXIDE
     Indication: PRODUCT USED FOR UNKNOWN INDICATION

REACTIONS (1)
  - Pigmentation disorder [Unknown]

NARRATIVE: CASE EVENT DATE: 201409
